FAERS Safety Report 19620395 (Version 3)
Quarter: 2021Q3

REPORT INFORMATION
  Report Type: Spontaneous
  Country: ES (occurrence: ES)
  Receive Date: 20210728
  Receipt Date: 20210906
  Transmission Date: 20211014
  Serious: Yes (Other)
  Sender: FDA-Public Use
  Company Number: ES-ROCHE-2874496

PATIENT
  Age: 49 Year
  Sex: Female

DRUGS (6)
  1. PARACETAMOL [Concomitant]
     Active Substance: ACETAMINOPHEN
  2. OCREVUS [Suspect]
     Active Substance: OCRELIZUMAB
     Indication: PRIMARY PROGRESSIVE MULTIPLE SCLEROSIS
     Route: 042
     Dates: start: 20200228
  3. CODEINE [Concomitant]
     Active Substance: CODEINE
     Dosage: NOT FIXED
  4. SOLIFENACIN SUCCINATE. [Concomitant]
     Active Substance: SOLIFENACIN SUCCINATE
  5. OCREVUS [Suspect]
     Active Substance: OCRELIZUMAB
     Indication: PREMEDICATION
  6. BACLOFEN. [Concomitant]
     Active Substance: BACLOFEN
     Dosage: 0?0?0.50, IBIS 20 MG 1?0?0?1

REACTIONS (1)
  - Macular degeneration [Recovered/Resolved]
